FAERS Safety Report 4602560-4 (Version None)
Quarter: 2005Q1

REPORT INFORMATION
  Report Type: 
  Country: None (occurrence: None)
  Receive Date: 20050309
  Receipt Date: 20050225
  Transmission Date: 20050727
  Serious: Yes (Hospitalization)
  Sender: FDA-Public Use
  Company Number: FR-BOEHRINGER INGELHEIM PHARMMACEUTICALS, INC.-2005-FF-00133FF

PATIENT
  Age: 53 Year
  Sex: Male
  Weight: 59 kg

DRUGS (6)
  1. VIRAMUNE [Suspect]
     Route: 048
     Dates: start: 20030410
  2. LEXOMIL [Concomitant]
     Route: 048
     Dates: start: 20041229
  3. VIDEX [Concomitant]
     Route: 048
  4. PAXIL [Concomitant]
     Route: 048
     Dates: start: 20041229
  5. EPIVIR [Concomitant]
     Route: 048
     Dates: start: 19960425
  6. BACTRIM FORTE [Concomitant]
     Route: 048

REACTIONS (3)
  - EOSINOPHILIA [None]
  - GAMMA-GLUTAMYLTRANSFERASE INCREASED [None]
  - PULMONARY GRANULOMA [None]
